FAERS Safety Report 8087134-8 (Version None)
Quarter: 2012Q1

REPORT INFORMATION
  Report Type: 
  Country: None (occurrence: None)
  Receive Date: 20120128
  Receipt Date: 20110512
  Transmission Date: 20120608
  Serious: No
  Sender: FDA-Public Use
  Company Number: US-ABBOTT-11P-163-0725273-00

PATIENT
  Sex: Female
  Weight: 88.53 kg

DRUGS (7)
  1. ENBREL [Concomitant]
  2. HUMIRA [Suspect]
     Indication: PSORIATIC ARTHROPATHY
     Route: 058
     Dates: start: 20100601, end: 20100701
  3. MELOXICAM [Concomitant]
     Indication: PSORIATIC ARTHROPATHY
  4. HYDROXYCHLOROQUINE SULFATE [Concomitant]
     Indication: PSORIATIC ARTHROPATHY
  5. CELEBREX [Concomitant]
     Indication: PSORIATIC ARTHROPATHY
  6. ENBREL [Concomitant]
     Indication: PSORIATIC ARTHROPATHY
  7. NORTRIPTYLINE HCL [Concomitant]
     Indication: PSORIATIC ARTHROPATHY

REACTIONS (1)
  - LOSS OF CONSCIOUSNESS [None]
